FAERS Safety Report 6331573-X (Version None)
Quarter: 2009Q3

REPORT INFORMATION
  Report Type: 
  Country: None (occurrence: None)
  Receive Date: 20090827
  Receipt Date: 20090731
  Transmission Date: 20100115
  Serious: No
  Sender: FDA-Public Use
  Company Number: US-JNJFOC-20090800153

PATIENT
  Sex: Male
  Weight: 108.86 kg

DRUGS (5)
  1. INVEGA [Suspect]
     Indication: BIPOLAR I DISORDER
     Route: 048
  2. ZYPREXA [Concomitant]
     Indication: SCHIZOPHRENIA
     Route: 048
  3. CARBATROL [Concomitant]
     Route: 048
  4. CARBATROL [Concomitant]
     Indication: DRUG USE FOR UNKNOWN INDICATION
     Route: 048
  5. CLONOPIN [Concomitant]
     Indication: ANXIETY
     Route: 048

REACTIONS (4)
  - FATIGUE [None]
  - FORMICATION [None]
  - MYALGIA [None]
  - PRURITUS [None]
